FAERS Safety Report 8482471-7 (Version None)
Quarter: 2012Q3

REPORT INFORMATION
  Report Type: 
  Country: None (occurrence: None)
  Receive Date: 20120702
  Receipt Date: 20120627
  Transmission Date: 20120928
  Serious: Yes (Hospitalization, Other)
  Sender: FDA-Public Use
  Company Number: US-BRISTOL-MYERS SQUIBB COMPANY-15556822

PATIENT
  Age: 72 Year
  Sex: Female

DRUGS (10)
  1. SPIRIVA [Concomitant]
     Route: 055
  2. INSULIN HUMAN [Suspect]
     Indication: DIABETES MELLITUS
     Dosage: BEFORE RANDAMIZATION-28NOV10,29NOV10-CONT (22IU).
  3. TIMOLOL MALEATE [Concomitant]
     Indication: GLAUCOMA
     Dosage: TIMOSAN
     Route: 047
  4. FESOTERODINE [Concomitant]
     Indication: URINARY INCONTINENCE
     Route: 048
  5. ASPIRIN [Concomitant]
     Dosage: 1DF:}100MG
  6. METFORMIN HCL [Suspect]
     Indication: DIABETES MELLITUS
  7. ALVEDON [Concomitant]
     Indication: PAIN
     Route: 048
  8. PLACEBO [Suspect]
     Indication: TYPE 2 DIABETES MELLITUS
     Dates: start: 20101026
  9. VAGIFEM [Concomitant]
     Indication: BLOOD OESTROGEN DECREASED
     Route: 067
  10. BLINDED: SAXAGLIPTIN [Suspect]
     Indication: TYPE 2 DIABETES MELLITUS
     Dosage: 1 DF= 2.5MG OR 5 MG
     Dates: start: 20101026

REACTIONS (2)
  - GASTROENTERITIS CRYPTOSPORIDIAL [None]
  - FEMORAL ARTERY OCCLUSION [None]
